FAERS Safety Report 17502825 (Version 1)
Quarter: 2020Q1

REPORT INFORMATION
  Report Type: Spontaneous
  Country: US (occurrence: US)
  Receive Date: 20200305
  Receipt Date: 20200305
  Transmission Date: 20200409
  Serious: No
  Sender: FDA-Public Use
  Company Number: None

PATIENT
  Age: 74 Year
  Sex: Female

DRUGS (1)
  1. BEOVU [Suspect]
     Active Substance: BROLUCIZUMAB-DBLL
     Indication: NEOVASCULAR AGE-RELATED MACULAR DEGENERATION
     Dosage: ?          OTHER FREQUENCY:ONCE EVERY MONTH;?
     Route: 047
     Dates: start: 20200107

REACTIONS (5)
  - Photopsia [None]
  - Eye pain [None]
  - Anterior chamber cell [None]
  - Vision blurred [None]
  - Foreign body in eye [None]

NARRATIVE: CASE EVENT DATE: 20200221
